FAERS Safety Report 20216228 (Version 1)
Quarter: 2021Q4

REPORT INFORMATION
  Report Type: Spontaneous
  Country: US (occurrence: None)
  Receive Date: 20211221
  Receipt Date: 20211221
  Transmission Date: 20220303
  Serious: Yes (Death)
  Sender: FDA-Public Use
  Company Number: None

PATIENT
  Age: 70 Year
  Sex: Female

DRUGS (1)
  1. BAMLANIVIMAB\ETESEVIMAB [Suspect]
     Active Substance: BAMLANIVIMAB\ETESEVIMAB
     Indication: COVID-19
     Dates: start: 20211208, end: 20211208

REACTIONS (9)
  - Depressed level of consciousness [None]
  - Respiratory disorder [None]
  - Cerebral infarction [None]
  - Embolic stroke [None]
  - Encephalopathy [None]
  - Seizure [None]
  - Lethargy [None]
  - Hypophagia [None]
  - Refusal of treatment by relative [None]

NARRATIVE: CASE EVENT DATE: 20211215
